FAERS Safety Report 14315092 (Version 6)
Quarter: 2020Q4

REPORT INFORMATION
  Report Type: Report from Study
  Country: DE (occurrence: DE)
  Receive Date: 20171221
  Receipt Date: 20201105
  Transmission Date: 20210113
  Serious: Yes (Hospitalization, Other)
  Sender: FDA-Public Use
  Company Number: DE-MYLANLABS-2017M1079847

PATIENT
  Age: 81 Year
  Sex: Female
  Weight: 59 kg

DRUGS (16)
  1. AVASTIN [Suspect]
     Active Substance: BEVACIZUMAB
     Dosage: 610 MILLIGRAM (LAST DOSE PRIOR TO SAE: 04/DEC/2013 (DIZZINESS))
     Route: 042
     Dates: start: 20131204, end: 20131204
  2. BEVACIZUMAB. [Suspect]
     Active Substance: BEVACIZUMAB
     Dosage: 590 MG, UNK
     Route: 042
     Dates: start: 20140109, end: 20140109
  3. FOLINIC ACID [Suspect]
     Active Substance: LEUCOVORIN
     Indication: COLORECTAL CANCER
     Dosage: 775 MILLIGRAM
     Route: 042
     Dates: start: 20140109, end: 20140109
  4. BEVACIZUMAB. [Suspect]
     Active Substance: BEVACIZUMAB
     Indication: COLORECTAL CANCER METASTATIC
     Dosage: 601 MG, Q2W
     Route: 042
     Dates: start: 20131011, end: 20131011
  5. BEVACIZUMAB. [Suspect]
     Active Substance: BEVACIZUMAB
     Dosage: 610 MG, LAST DOSE PRIOR TO SAE: 04/DEC/2013 (DIZZINESS)
     Route: 042
     Dates: start: 20131011, end: 20131011
  6. CAPECITABINE. [Suspect]
     Active Substance: CAPECITABINE
     Indication: COLORECTAL CANCER METASTATIC
     Dosage: 3000 MILLIGRAM, Q2W
     Route: 048
     Dates: start: 20131011, end: 20131209
  7. XELODA [Suspect]
     Active Substance: CAPECITABINE
     Indication: COLORECTAL CANCER METASTATIC
  8. AVASTIN [Suspect]
     Active Substance: BEVACIZUMAB
     Indication: COLORECTAL CANCER
     Dosage: 590 MILLIGRAM
     Route: 042
  9. FLUOROURACIL. [Suspect]
     Active Substance: FLUOROURACIL
     Indication: COLORECTAL CANCER
     Dosage: 4030 MG, UNK
     Route: 042
     Dates: start: 20140109, end: 20140109
  10. XELODA [Suspect]
     Active Substance: CAPECITABINE
     Indication: COLORECTAL CANCER
     Dosage: DAILY DOSE: 3000 MG MILLIGRAM(S) EVERY 2 WEEK
     Route: 048
     Dates: start: 20131011, end: 20131209
  11. ZOFRAN [Concomitant]
     Active Substance: ONDANSETRON HYDROCHLORIDE
     Indication: NAUSEA
     Dosage: 8 MILLIGRAM
     Route: 042
     Dates: start: 20140109, end: 20140109
  12. FLUOROURACIL. [Suspect]
     Active Substance: FLUOROURACIL
     Indication: COLORECTAL CANCER METASTATIC
  13. FOLINIC ACID [Suspect]
     Active Substance: LEUCOVORIN
     Indication: COLORECTAL CANCER METASTATIC
  14. AVASTIN [Suspect]
     Active Substance: BEVACIZUMAB
     Dosage: LAST DOSE PRIOR TO SAE: 04/DEC/2013 (DIZZINESS)
     Route: 042
     Dates: start: 20131011, end: 20131011
  15. BEVACIZUMAB. [Suspect]
     Active Substance: BEVACIZUMAB
     Dosage: 610 MG,LAST DOSE PRIOR TO SAE: 04/DEC/2013 (DIZZINESS)
     Route: 042
     Dates: start: 20131204, end: 20131204
  16. BEVACIZUMAB. [Suspect]
     Active Substance: BEVACIZUMAB
     Dosage: 610 MILLIGRAM, Q2W, LAST DOSE PRIOR TO SAE: 04/DEC/2013 (ILEUS)
     Route: 042
     Dates: start: 20131011, end: 20131011

REACTIONS (3)
  - Dizziness [Not Recovered/Not Resolved]
  - Ileus [Recovered/Resolved]
  - Gastrointestinal disorder [Recovered/Resolved]

NARRATIVE: CASE EVENT DATE: 20131209
